FAERS Safety Report 9781320 (Version 1)
Quarter: 2013Q4

REPORT INFORMATION
  Report Type: Spontaneous
  Country: US (occurrence: None)
  Receive Date: 20131223
  Receipt Date: 20131223
  Transmission Date: 20140711
  Serious: No
  Sender: FDA-Public Use
  Company Number: None

PATIENT
  Sex: 0

DRUGS (1)
  1. SINGULAR [Suspect]

REACTIONS (6)
  - Mood altered [None]
  - Insomnia [None]
  - Depression [None]
  - Social avoidant behaviour [None]
  - Mood altered [None]
  - Abnormal behaviour [None]
